FAERS Safety Report 18132509 (Version 3)
Quarter: 2020Q4

REPORT INFORMATION
  Report Type: Report from Study
  Country: US (occurrence: US)
  Receive Date: 20200811
  Receipt Date: 20201103
  Transmission Date: 20210113
  Serious: No
  Sender: FDA-Public Use
  Company Number: US-SA-2020SA206351

PATIENT

DRUGS (3)
  1. DUPILUMAB [Suspect]
     Active Substance: DUPILUMAB
     Indication: DERMATITIS ATOPIC
     Dosage: 600 MG, 1X
     Route: 058
     Dates: start: 20200801, end: 20200801
  2. DUPILUMAB [Suspect]
     Active Substance: DUPILUMAB
     Indication: ECZEMA
  3. DUPILUMAB [Suspect]
     Active Substance: DUPILUMAB
     Indication: ILLNESS
     Dosage: 300 MG, QOW
     Route: 058
     Dates: start: 202008, end: 20200924

REACTIONS (8)
  - Pruritus [Recovered/Resolved]
  - Eye paraesthesia [Recovering/Resolving]
  - Pruritus [Recovering/Resolving]
  - Skin burning sensation [Recovering/Resolving]
  - Eye irritation [Recovered/Resolved]
  - Alopecia [Recovering/Resolving]
  - Eye irritation [Recovering/Resolving]
  - Papule [Recovered/Resolved]

NARRATIVE: CASE EVENT DATE: 2020
